FAERS Safety Report 20434377 (Version 1)
Quarter: 2022Q1

REPORT INFORMATION
  Report Type: Report from Study
  Country: CA (occurrence: CA)
  Receive Date: 20220206
  Receipt Date: 20220206
  Transmission Date: 20220423
  Serious: Yes (Death)
  Sender: FDA-Public Use
  Company Number: CA-NOVARTISPH-PHHY2011CA23299

PATIENT
  Age: 62 Year
  Sex: Male
  Weight: 84.1 kg

DRUGS (19)
  1. EXTAVIA [Suspect]
     Active Substance: INTERFERON BETA-1B
     Indication: Secondary progressive multiple sclerosis
     Dosage: 8 MIU, QOD, TITRATION SCHEDULE: 2MIUX3 DOSES } 4MIUX3 DOSES } 6MIUX3 DOSES } THEN 8MIU QOD
     Route: 058
     Dates: start: 20110315
  2. EXTAVIA [Suspect]
     Active Substance: INTERFERON BETA-1B
     Indication: Multiple sclerosis
     Dosage: TITRATION SCHEDULE: 2 MILLI-INTERNATIONAL UNIT, TID
     Route: 058
     Dates: start: 20111015
  3. EXTAVIA [Suspect]
     Active Substance: INTERFERON BETA-1B
     Dosage: UNK (} 4MIUX3 DOSES } 6MIUX3 DOSES)
     Route: 058
     Dates: start: 20111015
  4. EXTAVIA [Suspect]
     Active Substance: INTERFERON BETA-1B
     Dosage: UNK (} THEN 8MIU QOD)
     Route: 058
     Dates: start: 20111015
  5. EXTAVIA [Suspect]
     Active Substance: INTERFERON BETA-1B
     Dosage: 8 MIU, QOD
     Route: 058
     Dates: start: 20160726
  6. SYNTHROID [Concomitant]
     Active Substance: LEVOTHYROXINE SODIUM
     Indication: Product used for unknown indication
     Dosage: UNK UNK, QD
     Route: 048
  7. AMLODIPINE [Concomitant]
     Active Substance: AMLODIPINE BESYLATE
     Indication: Product used for unknown indication
     Dosage: UNK UNK, QD
     Route: 048
  8. MAVIK [Concomitant]
     Active Substance: TRANDOLAPRIL
     Indication: Product used for unknown indication
     Dosage: UNK UNK, QD
     Route: 048
  9. PANTOPRAZOLE [Concomitant]
     Active Substance: PANTOPRAZOLE
     Indication: Product used for unknown indication
     Dosage: 40 MG, QD
     Route: 048
  10. VENLAFAXINE [Concomitant]
     Active Substance: VENLAFAXINE HYDROCHLORIDE
     Indication: Product used for unknown indication
     Dosage: UNK UNK, QD
     Route: 048
  11. METFORMIN [Concomitant]
     Active Substance: METFORMIN HYDROCHLORIDE
     Indication: Product used for unknown indication
     Dosage: UNK UNK, BID
     Route: 065
  12. SIMVASTATIN [Concomitant]
     Active Substance: SIMVASTATIN
     Indication: Product used for unknown indication
     Dosage: UNK
     Route: 065
  13. GLICLAZIDE [Concomitant]
     Active Substance: GLICLAZIDE
     Indication: Product used for unknown indication
     Dosage: UNK UNK, BID
     Route: 065
  14. METOPROLOL [Concomitant]
     Active Substance: METOPROLOL
     Indication: Product used for unknown indication
     Dosage: UNK UNK, BID
     Route: 065
  15. CLOTRIMAZOLE [Concomitant]
     Active Substance: CLOTRIMAZOLE
     Indication: Product used for unknown indication
     Dosage: 10 MG, PRN
     Route: 065
  16. HYDROCORTISONE [Concomitant]
     Active Substance: HYDROCORTISONE
     Indication: Product used for unknown indication
     Route: 065
  17. CIALIS ^GLAXOSMITHKLINE^ [Concomitant]
     Indication: Product used for unknown indication
     Dosage: UNK UNK, PRN
     Route: 065
  18. VITAMIN D [Concomitant]
     Active Substance: VITAMIN D NOS
     Indication: Product used for unknown indication
     Dosage: UNK DF, QW
     Route: 065
  19. BETASERON [Concomitant]
     Active Substance: INTERFERON BETA-1B
     Indication: Product used for unknown indication
     Dosage: UNK
     Route: 065

REACTIONS (15)
  - Death [Fatal]
  - Hypersomnia [Unknown]
  - Tremor [Unknown]
  - Concomitant disease aggravated [Unknown]
  - Mass [Unknown]
  - Disturbance in attention [Unknown]
  - Fatigue [Not Recovered/Not Resolved]
  - Asthenia [Unknown]
  - Feeling cold [Unknown]
  - Chills [Unknown]
  - Dizziness postural [Unknown]
  - Arthralgia [Unknown]
  - Dizziness [Unknown]
  - Product administration error [Unknown]
  - Drug ineffective [Unknown]

NARRATIVE: CASE EVENT DATE: 20110315
